FAERS Safety Report 18502618 (Version 2)
Quarter: 2020Q4

REPORT INFORMATION
  Report Type: Report from Study
  Country: US (occurrence: US)
  Receive Date: 20201113
  Receipt Date: 20201119
  Transmission Date: 20210114
  Serious: Yes (Other)
  Sender: FDA-Public Use
  Company Number: US-JNJFOC-20201109484

PATIENT
  Age: 56 Year
  Sex: Male

DRUGS (4)
  1. STELARA [Suspect]
     Active Substance: USTEKINUMAB
     Indication: CROHN^S DISEASE
  2. TUMERIC [Concomitant]
     Active Substance: HERBALS\TURMERIC
  3. DIAZEPAM. [Concomitant]
     Active Substance: DIAZEPAM
  4. STELARA [Suspect]
     Active Substance: USTEKINUMAB
     Indication: COLITIS ULCERATIVE
     Route: 058
     Dates: start: 20201015

REACTIONS (5)
  - Pyrexia [Unknown]
  - Skin cancer [Unknown]
  - Dizziness [Unknown]
  - Headache [Unknown]
  - Transient ischaemic attack [Unknown]

NARRATIVE: CASE EVENT DATE: 20201104
